FAERS Safety Report 13254471 (Version 7)
Quarter: 2018Q2

REPORT INFORMATION
  Report Type: Spontaneous
  Country: IT (occurrence: IT)
  Receive Date: 20170221
  Receipt Date: 20180410
  Transmission Date: 20180711
  Serious: Yes (Hospitalization, Other)
  Sender: FDA-Public Use
  Company Number: IT-ACCORD-048314

PATIENT
  Age: 82 Year
  Sex: Male

DRUGS (16)
  1. CALCIUM LEVOFOLINATE [Suspect]
     Active Substance: LEVOLEUCOVORIN CALCIUM
     Indication: PRODUCT USED FOR UNKNOWN INDICATION
     Route: 042
  2. ACETYLCARNITINE [Concomitant]
     Active Substance: ACETYLCARNITINE
     Dates: start: 20150811, end: 20150819
  3. IRINOTECAN [Suspect]
     Active Substance: IRINOTECAN
     Indication: COLON CANCER METASTATIC
     Dosage: CYCLE 1
     Route: 042
     Dates: start: 20150624
  4. INSULIN [Concomitant]
     Active Substance: INSULIN NOS
     Indication: PRODUCT USED FOR UNKNOWN INDICATION
     Dates: start: 2014
  5. MAGNESIUM SULFATE. [Concomitant]
     Active Substance: MAGNESIUM SULFATE
     Dates: start: 20150826
  6. ZANTAC [Concomitant]
     Active Substance: RANITIDINE HYDROCHLORIDE
     Indication: PROPHYLAXIS
     Dates: start: 20150624
  7. LOPERAMIDE [Concomitant]
     Active Substance: LOPERAMIDE
     Dates: start: 20150705, end: 20150707
  8. GLUTATHIONE/GLUTATHIONE SODIUM [Concomitant]
     Dates: start: 20150826
  9. FLUOROURACIL. [Suspect]
     Active Substance: FLUOROURACIL
     Indication: COLON CANCER METASTATIC
     Dosage: 600 MG,1800 MG, 380 MG ALL FROM 19-SEP-2015
     Route: 041
     Dates: start: 20150624
  10. ZALTRAP [Suspect]
     Active Substance: ZIV-AFLIBERCEPT
     Indication: COLON CANCER METASTATIC
     Dosage: CYCLE 1?ALSO RECEIVED ON 24-FEB-2016 AT 300 MG
     Route: 042
     Dates: start: 20150624, end: 20150624
  11. AVODART [Concomitant]
     Active Substance: DUTASTERIDE
     Dosage: STRENGTH:0.5?CAPSULE MOLLI
     Dates: end: 20150724
  12. CALCIUM GLUCONATE. [Concomitant]
     Active Substance: CALCIUM GLUCONATE
     Dates: start: 20150902
  13. FOLINIC ACID [Suspect]
     Active Substance: LEUCOVORIN
     Indication: COLON CANCER METASTATIC
     Dosage: CYCLE 1
     Route: 042
     Dates: start: 20151124
  14. AFLIBERCEPT [Suspect]
     Active Substance: AFLIBERCEPT
     Indication: COLORECTAL CANCER METASTATIC
     Route: 041
     Dates: start: 20150624, end: 20150624
  15. GONADORELIN [Concomitant]
     Active Substance: GONADORELIN
     Indication: PRODUCT USED FOR UNKNOWN INDICATION
     Dates: start: 20150731
  16. BICALUTAMIDE. [Concomitant]
     Active Substance: BICALUTAMIDE
     Dates: start: 20150724, end: 20150807

REACTIONS (9)
  - Diarrhoea [Recovered/Resolved]
  - Cardiac failure [Recovered/Resolved]
  - Dysgeusia [Recovered/Resolved]
  - Hypocalcaemia [Recovered/Resolved]
  - Proteinuria [Recovered/Resolved]
  - Intestinal obstruction [Recovered/Resolved]
  - Asthenia [Recovered/Resolved]
  - Hypomagnesaemia [Recovered/Resolved]
  - Pyrexia [Recovered/Resolved]

NARRATIVE: CASE EVENT DATE: 20150901
